FAERS Safety Report 14998052 (Version 3)
Quarter: 2019Q3

REPORT INFORMATION
  Report Type: Spontaneous
  Country: CA (occurrence: CA)
  Receive Date: 20180611
  Receipt Date: 20190723
  Transmission Date: 20191004
  Serious: Yes (Hospitalization)
  Sender: FDA-Public Use
  Company Number: CA-ACTELION-A-NJ2018-173370

PATIENT
  Age: 74 Year
  Sex: Male

DRUGS (9)
  1. TIAZAC [Concomitant]
     Active Substance: DILTIAZEM HYDROCHLORIDE
  2. PANTOPRAZOLE [Concomitant]
     Active Substance: PANTOPRAZOLE
  3. OPSUMIT [Suspect]
     Active Substance: MACITENTAN
     Indication: PULMONARY ARTERIAL HYPERTENSION
     Dosage: 10 MG, UNK
     Route: 048
     Dates: start: 20160727
  4. VITAMIN D [Concomitant]
     Active Substance: VITAMIN D NOS
  5. SENOKOT [Concomitant]
     Active Substance: SENNOSIDES
  6. ASA [Concomitant]
     Active Substance: ASPIRIN
     Dosage: 81 MG, UNK
  7. ROSUVASTATIN. [Concomitant]
     Active Substance: ROSUVASTATIN
  8. COVERSYL [Concomitant]
     Active Substance: PERINDOPRIL
  9. METOPROLOL. [Concomitant]
     Active Substance: METOPROLOL

REACTIONS (7)
  - Pancreatitis [Recovering/Resolving]
  - Denture wearer [Not Recovered/Not Resolved]
  - Vomiting [Recovering/Resolving]
  - Diarrhoea [Recovering/Resolving]
  - Unevaluable event [Not Recovered/Not Resolved]
  - Gingival pain [Not Recovered/Not Resolved]
  - Tooth extraction [Recovering/Resolving]

NARRATIVE: CASE EVENT DATE: 20180526
